FAERS Safety Report 5865389-5 (Version None)
Quarter: 2008Q3

REPORT INFORMATION
  Report Type: 
  Country: None (occurrence: None)
  Receive Date: 20080829
  Receipt Date: 20080725
  Transmission Date: 20090109
  Serious: No
  Sender: FDA-Public Use
  Company Number: US-ABBOTT-08P-163-0465669-00

PATIENT
  Sex: Male

DRUGS (3)
  1. SIMCOR [Suspect]
     Indication: HIGH DENSITY LIPOPROTEIN DECREASED
     Dosage: 1000/20MG
     Route: 048
     Dates: start: 20080601
  2. SIMCOR [Suspect]
     Indication: BLOOD TRIGLYCERIDES INCREASED
     Dosage: 1000/20MG
     Route: 048
     Dates: start: 20080601, end: 20080601
  3. SIMCOR [Suspect]
     Dosage: 500/20MG
     Route: 048
     Dates: start: 20080601, end: 20080601

REACTIONS (4)
  - BLOOD GLUCOSE INCREASED [None]
  - FLUSHING [None]
  - GLOMERULAR FILTRATION RATE DECREASED [None]
  - PARAESTHESIA [None]
